FAERS Safety Report 4307262-X (Version None)
Quarter: 2004Q1

REPORT INFORMATION
  Report Type: 
  Country: None (occurrence: None)
  Receive Date: 20040227
  Receipt Date: 20010823
  Transmission Date: 20041129
  Serious: Yes (Hospitalization, Disabling, Other)
  Sender: FDA-Public Use
  Company Number: WAES 01082564

PATIENT
  Age: 69 Year
  Sex: Female
  Weight: 109 kg

DRUGS (9)
  1. [THERAPY UNSPECIFIED] [Concomitant]
  2. TYLENOL W/ CODEINE NO. 3 [Concomitant]
  3. CAPTOPRIL [Concomitant]
  4. CAPOZIDE [Concomitant]
  5. CISAPRIDE [Concomitant]
  6. GLYBURIDE [Concomitant]
  7. HEPARIN [Suspect]
  8. PROVERA [Suspect]
     Indication: GENITAL DISORDER FEMALE
     Dates: start: 20010101, end: 20010701
  9. VIOXX [Suspect]
     Indication: OSTEOARTHRITIS
     Route: 048
     Dates: start: 19990920, end: 20010701

REACTIONS (49)
  - ALOPECIA [None]
  - BACK PAIN [None]
  - BLINDNESS [None]
  - BLOOD GLUCOSE INCREASED [None]
  - CAROTID ARTERY STENOSIS [None]
  - CATARACT [None]
  - CEREBRAL ARTERY EMBOLISM [None]
  - CEREBRAL INFARCTION [None]
  - CEREBROVASCULAR ACCIDENT [None]
  - CONVULSION [None]
  - DEPRESSION [None]
  - DRY SKIN [None]
  - DYSPNOEA [None]
  - EMBOLISM [None]
  - EPISTAXIS [None]
  - FLUSHING [None]
  - GASTROOESOPHAGEAL REFLUX DISEASE [None]
  - GOUT [None]
  - HAEMORRHAGE INTRACRANIAL [None]
  - HEADACHE [None]
  - HEMIANOPIA HOMONYMOUS [None]
  - HEMIPARESIS [None]
  - HERPES ZOSTER [None]
  - HYPERHIDROSIS [None]
  - HYPERTENSION [None]
  - IMPAIRED DRIVING ABILITY [None]
  - IMPAIRED WORK ABILITY [None]
  - INJURY [None]
  - INTERVERTEBRAL DISC DEGENERATION [None]
  - JOINT INJURY [None]
  - LOSS OF CONSCIOUSNESS [None]
  - MENINGIOMA [None]
  - NASAL CONGESTION [None]
  - NAUSEA [None]
  - NEUROLOGICAL SYMPTOM [None]
  - PAIN [None]
  - PALLOR [None]
  - PNEUMONIA [None]
  - RADICULOPATHY [None]
  - RASH [None]
  - RIFT VALLEY FEVER [None]
  - SCIATICA [None]
  - TACHYCARDIA [None]
  - THYROID MASS [None]
  - TREATMENT NONCOMPLIANCE [None]
  - VAGINAL HAEMORRHAGE [None]
  - VISUAL FIELD DEFECT [None]
  - WEIGHT DECREASED [None]
  - WEIGHT INCREASED [None]
